FAERS Safety Report 23347383 (Version 1)
Quarter: 2023Q4

REPORT INFORMATION
  Report Type: Spontaneous
  Country: US (occurrence: US)
  Receive Date: 20231228
  Receipt Date: 20231228
  Transmission Date: 20240110
  Serious: No
  Sender: FDA-Public Use
  Company Number: US-PFIZER INC-PV202300204480

PATIENT
  Age: 36 Year
  Sex: Female

DRUGS (1)
  1. NURTEC ODT [Suspect]
     Active Substance: RIMEGEPANT SULFATE
     Indication: Migraine
     Dosage: DISSOLVE ONE ORAL DISINTEGRATING TABLET IN MOUTH AT THE FIRST ONSET OF MIGRAINE ONCE A DAY AS NEEDED
     Route: 048

REACTIONS (3)
  - Nausea [Unknown]
  - Intentional overdose [Unknown]
  - Drug ineffective [Unknown]
